FAERS Safety Report 18904759 (Version 2)
Quarter: 2021Q1

REPORT INFORMATION
  Report Type: Report from Study
  Country: US (occurrence: US)
  Receive Date: 20210217
  Receipt Date: 20210304
  Transmission Date: 20210420
  Serious: Yes (Other)
  Sender: FDA-Public Use
  Company Number: NVSC2021US035538

PATIENT
  Sex: Female

DRUGS (1)
  1. TRILEPTAL [Suspect]
     Active Substance: OXCARBAZEPINE
     Indication: PRODUCT USED FOR UNKNOWN INDICATION
     Dosage: UNK
     Route: 065

REACTIONS (7)
  - Seizure [Unknown]
  - Muscle spasms [Unknown]
  - Memory impairment [Unknown]
  - Feeding disorder [Unknown]
  - Compulsive hoarding [Unknown]
  - Dementia [Unknown]
  - Confusional state [Unknown]
